FAERS Safety Report 9971369 (Version 2)
Quarter: 2014Q2

REPORT INFORMATION
  Report Type: Spontaneous
  Country: US (occurrence: US)
  Receive Date: 20140306
  Receipt Date: 20140507
  Transmission Date: 20141212
  Serious: Yes (Other)
  Sender: FDA-Public Use
  Company Number: US-BAYER-2014-032554

PATIENT
  Age: 35 Year
  Sex: Female
  Weight: 77.1 kg

DRUGS (3)
  1. MIRENA [Suspect]
     Indication: CONTRACEPTION
     Dosage: 20 MCG/24HR, CONT
     Route: 015
     Dates: start: 20110707
  2. LAMICTAL [Concomitant]
     Dosage: 200 MG, BID
  3. HALOPERIDOL [Concomitant]
     Dosage: 2 MG, PRN

REACTIONS (3)
  - Abortion spontaneous [None]
  - Pregnancy with contraceptive device [Recovered/Resolved]
  - Drug ineffective [None]
